FAERS Safety Report 5286072-3 (Version None)
Quarter: 2007Q2

REPORT INFORMATION
  Report Type: 
  Country: None (occurrence: None)
  Receive Date: 20070404
  Receipt Date: 20070330
  Transmission Date: 20071010
  Serious: Yes (Death, Other)
  Sender: FDA-Public Use
  Company Number: PHNU2006DE03702

PATIENT
  Sex: Male

DRUGS (9)
  1. ZOMETA [Suspect]
     Indication: METASTASES TO BONE
     Dosage: 4 MG, QMO
     Route: 042
     Dates: start: 20040308, end: 20060701
  2. DOCETAXEL [Concomitant]
     Indication: PROSTATE CANCER METASTATIC
     Dates: start: 20040201, end: 20061001
  3. PAMBA [Concomitant]
     Dosage: 1 DF, TID
     Route: 048
     Dates: start: 20040201
  4. THIAMAZOLE [Concomitant]
     Indication: HYPERTHYROIDISM
     Route: 048
  5. BISOPROLOL [Concomitant]
     Indication: CORONARY ARTERY DISEASE
     Dosage: 5 MG, QD
     Route: 048
  6. NOVAMINSULFON ^LICHTENSTEIN^ [Concomitant]
     Indication: PAIN
     Dosage: 1 DF, TID
     Route: 065
  7. TORSEMIDE [Concomitant]
     Indication: CORONARY ARTERY DISEASE
     Dosage: 5 MG - 10 MG - 0 /DAY
     Route: 048
  8. DEXAMETHASONE [Concomitant]
     Dosage: 4 TO 8 MG TWO TIMES FOR AND AFTER CHEMO
     Route: 065
  9. CLEXANE [Concomitant]

REACTIONS (4)
  - DENTAL TREATMENT [None]
  - JAW OPERATION [None]
  - MALIGNANT NEOPLASM PROGRESSION [None]
  - OSTEOLYSIS [None]
